FAERS Safety Report 13523250 (Version 2)
Quarter: 2017Q3

REPORT INFORMATION
  Report Type: Spontaneous
  Country: US (occurrence: US)
  Receive Date: 20170508
  Receipt Date: 20170811
  Transmission Date: 20171127
  Serious: Yes (Death)
  Sender: FDA-Public Use
  Company Number: US-VIFOR (INTERNATIONAL) INC.-VIT-2017-01258

PATIENT
  Age: 73 Year
  Sex: Female

DRUGS (20)
  1. ATROPINE. [Concomitant]
     Active Substance: ATROPINE
  2. LATANOPROST. [Concomitant]
     Active Substance: LATANOPROST
  3. ASA [Concomitant]
     Active Substance: ASPIRIN
  4. METOPROLOL. [Concomitant]
     Active Substance: METOPROLOL
  5. VELTASSA [Suspect]
     Active Substance: PATIROMER
     Route: 048
  6. AMLODIPINE [Concomitant]
     Active Substance: AMLODIPINE BESYLATE
  7. SEVELAMER CARBONATE. [Concomitant]
     Active Substance: SEVELAMER CARBONATE
  8. ERGOCALCIFEROL. [Concomitant]
     Active Substance: ERGOCALCIFEROL
  9. NOVOLIN [Concomitant]
     Active Substance: INSULIN HUMAN
  10. BRIMONIDINE [Concomitant]
     Active Substance: BRIMONIDINE TARTRATE
  11. ATORVASTATIN [Concomitant]
     Active Substance: ATORVASTATIN
  12. FOLIC ACID. [Concomitant]
     Active Substance: FOLIC ACID
  13. LORATADINE. [Concomitant]
     Active Substance: LORATADINE
  14. VELTASSA [Suspect]
     Active Substance: PATIROMER
     Indication: HYPERKALAEMIA
     Route: 048
     Dates: start: 20161014, end: 20170731
  15. INSULIN [Concomitant]
     Active Substance: INSULIN NOS
  16. ACETYLSALICYLIC ACID [Concomitant]
     Active Substance: ASPIRIN
  17. RENAGEL [Concomitant]
     Active Substance: SEVELAMER HYDROCHLORIDE
  18. GABAPENTIN. [Concomitant]
     Active Substance: GABAPENTIN
  19. SENSIPAR [Concomitant]
     Active Substance: CINACALCET HYDROCHLORIDE
  20. CARVEDILOL. [Concomitant]
     Active Substance: CARVEDILOL

REACTIONS (3)
  - Pruritus [Unknown]
  - Faeces hard [Unknown]
  - Death [Fatal]

NARRATIVE: CASE EVENT DATE: 201707
